FAERS Safety Report 9927490 (Version 1)
Quarter: 2014Q1

REPORT INFORMATION
  Report Type: Spontaneous
  Country: US (occurrence: US)
  Receive Date: 20140227
  Receipt Date: 20140227
  Transmission Date: 20141002
  Serious: Yes (Hospitalization)
  Sender: FDA-Public Use
  Company Number: PHEH2014US003566

PATIENT
  Sex: Male

DRUGS (4)
  1. SANDOSTATIN [Suspect]
     Indication: CARCINOID TUMOUR
     Dosage: 100-500 UG, PRN
     Dates: start: 200906, end: 201102
  2. SANDOSTATIN [Suspect]
     Dosage: UNK UKN, UNK
  3. SANDOSTATIN [Suspect]
     Dosage: UNK UKN, UNK
  4. SANDOSTATIN [Suspect]
     Dosage: UNK UKN, UNK

REACTIONS (1)
  - Sphincter of Oddi dysfunction [Unknown]
